FAERS Safety Report 7170963-2 (Version None)
Quarter: 2010Q4

REPORT INFORMATION
  Report Type: 
  Country: None (occurrence: None)
  Receive Date: 20101206
  Receipt Date: 20101123
  Transmission Date: 20110411
  Serious: Yes (Death, Hospitalization, Other)
  Sender: FDA-Public Use
  Company Number: 2010US004777

PATIENT
  Age: 41 Year
  Sex: Female

DRUGS (10)
  1. PROGRAF [Suspect]
     Indication: PROPHYLAXIS AGAINST GRAFT VERSUS HOST DISEASE
     Dates: start: 20090101
  2. MYCAMINE [Suspect]
     Indication: INFECTION PROPHYLAXIS
     Dates: start: 20090101
  3. AMBISOME [Suspect]
     Indication: LUNG INFECTION
     Dates: start: 20091201
  4. FLUDARABINE [Suspect]
     Indication: CORD BLOOD TRANSPLANT THERAPY
     Dosage: 120 MG/M2
     Dates: start: 20091101, end: 20091101
  5. CYCLOPHOSPHAMIDE [Suspect]
     Indication: CORD BLOOD TRANSPLANT THERAPY
     Dosage: 4800 MG/M2
     Dates: start: 20091101, end: 20091101
  6. SIROLIMUS [Suspect]
     Indication: PROPHYLAXIS AGAINST GRAFT VERSUS HOST DISEASE
     Dates: start: 20090101, end: 20090101
  7. DEXAMETHASONE [Suspect]
     Indication: ANGIOEDEMA
     Dates: start: 20090101
  8. METHYLPREDNISOLONE [Suspect]
     Indication: PROPHYLAXIS AGAINST GRAFT VERSUS HOST DISEASE
     Dates: start: 20091201
  9. CEFTAZIDIME [Concomitant]
  10. ACYCLOVIR [Concomitant]

REACTIONS (15)
  - ANGIOEDEMA [None]
  - BRAIN MIDLINE SHIFT [None]
  - CARDIOGENIC SHOCK [None]
  - CATHETER CULTURE POSITIVE [None]
  - DELAYED ENGRAFTMENT [None]
  - DISTRIBUTIVE SHOCK [None]
  - ESCHERICHIA BACTERAEMIA [None]
  - ESCHERICHIA TEST POSITIVE [None]
  - EXTRADURAL HAEMATOMA [None]
  - NEUTROPENIA [None]
  - PULMONARY INFARCTION [None]
  - PULMONARY OEDEMA [None]
  - RENAL FAILURE ACUTE [None]
  - SYSTEMIC MYCOSIS [None]
  - THROMBOCYTOPENIA [None]
